FAERS Safety Report 18770762 (Version 1)
Quarter: 2021Q1

REPORT INFORMATION
  Report Type: Spontaneous
  Country: CN (occurrence: CN)
  Receive Date: 20210122
  Receipt Date: 20210122
  Transmission Date: 20210419
  Serious: Yes (Other)
  Sender: FDA-Public Use
  Company Number: CN-AMGEN-CHNSP2021009515

PATIENT
  Age: 72 Year
  Sex: Male

DRUGS (5)
  1. PANTOPRAZOLO [Suspect]
     Active Substance: PANTOPRAZOLE SODIUM
     Indication: GASTRIC ULCER
     Dosage: 20 MILLIGRAM, BID
     Route: 048
     Dates: start: 20201219, end: 20201228
  2. MOSAPRIDE CITRATE [Suspect]
     Active Substance: MOSAPRIDE CITRATE
     Indication: GASTROINTESTINAL HYPOMOTILITY
     Dosage: 5 MILLIGRAM, TID
     Route: 048
     Dates: start: 20201221, end: 20201228
  3. MOXIFLOXACIN HYDROCHLORIDE AND SODIUM CHLORIDE [Suspect]
     Active Substance: MOXIFLOXACIN HYDROCHLORIDE
     Indication: INFECTION
     Dosage: 400 MILLIGRAM, QD
     Route: 042
     Dates: start: 20201222, end: 20201228
  4. GRAN [Suspect]
     Active Substance: FILGRASTIM
     Indication: MYELOSUPPRESSION
     Dosage: 300 MICROGRAM, QD
     Route: 058
     Dates: start: 20201224, end: 20201230
  5. LENALIDOMIDE [Suspect]
     Active Substance: LENALIDOMIDE
     Indication: PLASMA CELL MYELOMA
     Dosage: 25 MILLIGRAM, QD
     Route: 048
     Dates: start: 20201222, end: 20201228

REACTIONS (2)
  - Pruritus [Recovered/Resolved]
  - Rash [Recovered/Resolved]

NARRATIVE: CASE EVENT DATE: 20201225
